FAERS Safety Report 5120203-0 (Version None)
Quarter: 2006Q4

REPORT INFORMATION
  Report Type: 
  Country: None (occurrence: None)
  Receive Date: 20061002
  Receipt Date: 20061002
  Transmission Date: 20070319
  Serious: Yes (Life-Threatening, Hospitalization, Other)
  Sender: FDA-Public Use
  Company Number: None

PATIENT
  Age: 23 Year
  Sex: Male
  Weight: 89.8122 kg

DRUGS (2)
  1. PREDNISONE [Suspect]
     Indication: BACK PAIN
     Dosage: 75 MG DAILY IV DRIP
     Route: 041
     Dates: start: 20040515, end: 20040516
  2. MENTHYL-PREDNIZONE [Concomitant]

REACTIONS (2)
  - MEDICATION ERROR [None]
  - UNEVALUABLE EVENT [None]
